FAERS Safety Report 13132437 (Version 1)
Quarter: 2017Q1

REPORT INFORMATION
  Report Type: Spontaneous
  Country: US (occurrence: US)
  Receive Date: 20170120
  Receipt Date: 20170120
  Transmission Date: 20170428
  Serious: No
  Sender: FDA-Public Use
  Company Number: US-TEVA-636913USA

PATIENT
  Sex: Female
  Weight: 61.29 kg

DRUGS (1)
  1. HYDROCHLOROTHIAZIDE. [Suspect]
     Active Substance: HYDROCHLOROTHIAZIDE
     Dates: end: 20160215

REACTIONS (2)
  - Gluten sensitivity [Unknown]
  - Anti-transglutaminase antibody increased [Unknown]
